FAERS Safety Report 14180000 (Version 1)
Quarter: 2017Q4

REPORT INFORMATION
  Report Type: Spontaneous
  Country: US (occurrence: US)
  Receive Date: 20171110
  Receipt Date: 20171110
  Transmission Date: 20180321
  Serious: No
  Sender: FDA-Public Use
  Company Number: US-G+W LABS-GW2017US000068

PATIENT

DRUGS (1)
  1. CLINDAMYCIN HYDROCHLORIDE. [Suspect]
     Active Substance: CLINDAMYCIN HYDROCHLORIDE
     Indication: ANTIBIOTIC PROPHYLAXIS
     Dosage: 300 MG, TID
     Route: 048
     Dates: start: 20170123, end: 20170125

REACTIONS (4)
  - Throat irritation [Recovering/Resolving]
  - Dysgeusia [Recovered/Resolved]
  - Oropharyngeal pain [Recovering/Resolving]
  - Wrong technique in product usage process [Recovered/Resolved]

NARRATIVE: CASE EVENT DATE: 201701
